FAERS Safety Report 16034961 (Version 1)
Quarter: 2019Q1

REPORT INFORMATION
  Report Type: Spontaneous
  Country: US (occurrence: US)
  Receive Date: 20190305
  Receipt Date: 20190305
  Transmission Date: 20190418
  Serious: Yes (Other)
  Sender: FDA-Public Use
  Company Number: US-TEVA-2019-US-1018875

PATIENT
  Age: 66 Year
  Sex: Female
  Weight: 53.57 kg

DRUGS (2)
  1. QVAR [Suspect]
     Active Substance: BECLOMETHASONE DIPROPIONATE
     Indication: DYSPNOEA
     Dates: start: 201805
  2. TIKOSYN [Suspect]
     Active Substance: DOFETILIDE
     Dates: end: 20180812

REACTIONS (6)
  - Supraventricular extrasystoles [Unknown]
  - Night sweats [Recovered/Resolved]
  - Sleep disorder [Recovered/Resolved]
  - Breath sounds abnormal [Unknown]
  - Pleurisy [Unknown]
  - Dyspnoea [Not Recovered/Not Resolved]

NARRATIVE: CASE EVENT DATE: 201807
